FAERS Safety Report 10784978 (Version 1)
Quarter: 2015Q1

REPORT INFORMATION
  Report Type: Spontaneous
  Country: GR (occurrence: None)
  Receive Date: 20150209
  Receipt Date: 20150209
  Transmission Date: 20150721
  Serious: Yes (Life-Threatening, Hospitalization)
  Sender: FDA-Public Use
  Company Number: 2015FE00279

PATIENT
  Age: 75 Year
  Sex: Male

DRUGS (1)
  1. FIRMAGON [Suspect]
     Active Substance: DEGARELIX ACETATE
     Indication: PROSTATE CANCER METASTATIC
     Dosage: 120 MG, ONCE/SINGLE, SUBCUTANEOUS
     Route: 058
     Dates: start: 201405, end: 201405

REACTIONS (3)
  - Fatigue [None]
  - Angina pectoris [None]
  - Cardiac failure [None]
